FAERS Safety Report 21644727 (Version 1)
Quarter: 2022Q4

REPORT INFORMATION
  Report Type: Report from Study
  Country: US (occurrence: US)
  Receive Date: 20221125
  Receipt Date: 20221125
  Transmission Date: 20230113
  Serious: No
  Sender: FDA-Public Use
  Company Number: US-ABBVIE-22K-163-4522585-00

PATIENT
  Sex: Male

DRUGS (4)
  1. SKYRIZI [Suspect]
     Active Substance: RISANKIZUMAB-RZAA
     Indication: Psoriasis
     Dosage: WEEK 0?FORM STRENGTH: 150 MILLIGRAM
     Route: 058
     Dates: start: 20220713, end: 20220713
  2. SKYRIZI [Suspect]
     Active Substance: RISANKIZUMAB-RZAA
     Dosage: WEEK 4? FORM STRENGTH: 150 MILLIGRAM
     Route: 058
     Dates: start: 20220810
  3. MODERNA COVID-19 VACCINE [Concomitant]
     Active Substance: ELASOMERAN
     Indication: COVID-19 immunisation
     Dosage: COVID BOOSTER
     Route: 030
     Dates: start: 20221012, end: 20221012
  4. CLOBETASOL [Concomitant]
     Active Substance: CLOBETASOL
     Indication: Product used for unknown indication
     Route: 065

REACTIONS (6)
  - Fatigue [Unknown]
  - Pruritus [Unknown]
  - Pruritus [Recovered/Resolved]
  - Psoriasis [Unknown]
  - Dry skin [Unknown]
  - Off label use [Unknown]

NARRATIVE: CASE EVENT DATE: 20220101
